FAERS Safety Report 10012633 (Version 3)
Quarter: 2014Q1

REPORT INFORMATION
  Report Type: Spontaneous
  Country: US (occurrence: US)
  Receive Date: 20140314
  Receipt Date: 20140325
  Transmission Date: 20141002
  Serious: Yes (Other)
  Sender: FDA-Public Use
  Company Number: US-TEVA-468505USA

PATIENT
  Sex: Female

DRUGS (1)
  1. PARAGARD 380A [Suspect]
     Indication: CONTRACEPTION
     Route: 015
     Dates: start: 201302, end: 20140307

REACTIONS (5)
  - Pregnancy with contraceptive device [Unknown]
  - Drug ineffective [Unknown]
  - Ectopic pregnancy with contraceptive device [Unknown]
  - Abortion spontaneous [Unknown]
  - Hormone level abnormal [Unknown]
